FAERS Safety Report 7524033-1 (Version None)
Quarter: 2011Q2

REPORT INFORMATION
  Report Type: 
  Country: None (occurrence: None)
  Receive Date: 20110604
  Receipt Date: 20110520
  Transmission Date: 20111010
  Serious: Yes (Hospitalization)
  Sender: FDA-Public Use
  Company Number: JP-WATSON-2011-03435

PATIENT
  Age: 71 Year
  Sex: Male

DRUGS (6)
  1. FLUOROURACIL [Suspect]
     Indication: METASTASES TO LUNG
     Dosage: UNK
     Route: 042
  2. FLUOROURACIL [Suspect]
     Indication: RECTAL CANCER
  3. OXALIPLATIN [Suspect]
     Indication: RECTAL CANCER
  4. LEUCOVORIN CALCIUM [Suspect]
     Indication: RECTAL CANCER
  5. OXALIPLATIN [Suspect]
     Indication: METASTASES TO LUNG
     Dosage: UNK
     Route: 042
  6. LEUCOVORIN CALCIUM [Suspect]
     Indication: METASTASES TO LUNG
     Dosage: UNK

REACTIONS (2)
  - RESPIRATORY FAILURE [None]
  - INTERSTITIAL LUNG DISEASE [None]
